FAERS Safety Report 11085748 (Version 2)
Quarter: 2015Q2

REPORT INFORMATION
  Report Type: Spontaneous
  Country: US (occurrence: US)
  Receive Date: 20150503
  Receipt Date: 20150525
  Transmission Date: 20150821
  Serious: No
  Sender: FDA-Public Use
  Company Number: US-JNJFOC-20140105967

PATIENT
  Sex: Female

DRUGS (1)
  1. ORTHO-NOVUM [Suspect]
     Active Substance: ETHINYL ESTRADIOL\NORETHINDRONE
     Indication: CONTRACEPTION
     Route: 065

REACTIONS (7)
  - Sexual dysfunction [Unknown]
  - Overweight [Unknown]
  - Adverse drug reaction [Unknown]
  - Panic attack [Unknown]
  - Major depression [Not Recovered/Not Resolved]
  - Mental disorder [Unknown]
  - Affective disorder [Not Recovered/Not Resolved]
